FAERS Safety Report 6355822-7 (Version None)
Quarter: 2009Q3

REPORT INFORMATION
  Report Type: 
  Country: None (occurrence: None)
  Receive Date: 20090915
  Receipt Date: 20090904
  Transmission Date: 20100115
  Serious: Yes (Hospitalization, Other)
  Sender: FDA-Public Use
  Company Number: US-BAYER-200926658NA

PATIENT
  Sex: Female

DRUGS (5)
  1. BETASERON [Suspect]
     Indication: RELAPSING-REMITTING MULTIPLE SCLEROSIS
     Dosage: TOTAL DAILY DOSE: 8 MIU
     Route: 058
     Dates: start: 20070701, end: 20090501
  2. SOLU-MEDROL [Concomitant]
     Dates: start: 20090902, end: 20090902
  3. PREDNISONE [Concomitant]
  4. TOPAMAX [Concomitant]
  5. NEURONTIN [Concomitant]

REACTIONS (12)
  - ANAEMIA [None]
  - CANDIDIASIS [None]
  - DEPRESSION [None]
  - FOLLICULITIS [None]
  - GINGIVAL SWELLING [None]
  - IMMUNE SYSTEM DISORDER [None]
  - LIVER FUNCTION TEST ABNORMAL [None]
  - PERSONALITY CHANGE [None]
  - RENAL FUNCTION TEST ABNORMAL [None]
  - RENAL PAIN [None]
  - SUICIDAL IDEATION [None]
  - WEIGHT DECREASED [None]
